FAERS Safety Report 5808840-9 (Version None)
Quarter: 2008Q3

REPORT INFORMATION
  Report Type: 
  Country: None (occurrence: None)
  Receive Date: 20080714
  Receipt Date: 20080701
  Transmission Date: 20090109
  Serious: Yes (Hospitalization, Other)
  Sender: FDA-Public Use
  Company Number: US-ELI_LILLY_AND_COMPANY-US200807000240

PATIENT
  Sex: Female

DRUGS (14)
  1. CYMBALTA [Suspect]
     Dosage: 60 MG, EACH MORNING
  2. CYMBALTA [Suspect]
     Dosage: 30 MG, EACH EVENING
  3. ASPIRIN [Concomitant]
  4. PREVACID [Concomitant]
  5. MORPHINE [Concomitant]
  6. ZOCOR [Concomitant]
  7. TYLENOL /SCH/ [Concomitant]
     Dosage: UNK, AS NEEDED
  8. XANAX [Concomitant]
     Dosage: UNK, AS NEEDED
  9. LOVENOX [Concomitant]
  10. GUAIFENESIN [Concomitant]
  11. ATIVAN [Concomitant]
  12. LEVAQUIN [Concomitant]
  13. CARDIZEM [Concomitant]
  14. DOXYCYCLINE HCL [Concomitant]

REACTIONS (3)
  - GASTROINTESTINAL TUBE INSERTION [None]
  - HOSPITALISATION [None]
  - MECHANICAL VENTILATION [None]
